FAERS Safety Report 18031596 (Version 2)
Quarter: 2020Q3

REPORT INFORMATION
  Report Type: Spontaneous
  Country: US (occurrence: US)
  Receive Date: 20200716
  Receipt Date: 20200819
  Transmission Date: 20201103
  Serious: No
  Sender: FDA-Public Use
  Company Number: US-PFIZER INC-2020272379

PATIENT
  Age: 57 Year
  Sex: Male

DRUGS (3)
  1. INLYTA [Suspect]
     Active Substance: AXITINIB
     Dosage: UNK
     Dates: start: 20200625
  2. INLYTA [Suspect]
     Active Substance: AXITINIB
     Dosage: UNK, (DOSE INCREASED)
     Dates: start: 20200806
  3. INLYTA [Suspect]
     Active Substance: AXITINIB
     Dosage: UNK
     Dates: start: 20200630

REACTIONS (3)
  - Renal pain [Unknown]
  - Diarrhoea [Unknown]
  - Fatigue [Unknown]
